FAERS Safety Report 19480059 (Version 1)
Quarter: 2021Q2

REPORT INFORMATION
  Report Type: Spontaneous
  Country: US (occurrence: US)
  Receive Date: 20210630
  Receipt Date: 20210630
  Transmission Date: 20210717
  Serious: No
  Sender: FDA-Public Use
  Company Number: US-FOUNDATIONCONSUMERHC-2021-US-000101

PATIENT
  Age: 27 Year
  Sex: Female
  Weight: 92.99 kg

DRUGS (4)
  1. CLONAZEPAM 1MG [Concomitant]
     Active Substance: CLONAZEPAM
     Dosage: PRN
  2. TAKE ACTION [Suspect]
     Active Substance: LEVONORGESTREL
     Indication: POST COITAL CONTRACEPTION
     Dosage: 1.5MG X 1 DOSE
     Route: 048
     Dates: start: 20201116, end: 20201116
  3. PHENTERMINE. [Concomitant]
     Active Substance: PHENTERMINE
  4. ESCITALOPRAM [Concomitant]
     Active Substance: ESCITALOPRAM OXALATE
     Dosage: 10MG ONCE DAILY

REACTIONS (2)
  - Vaginal haemorrhage [Recovered/Resolved]
  - Vaginal haemorrhage [Recovered/Resolved]

NARRATIVE: CASE EVENT DATE: 20201125
